FAERS Safety Report 5097030-6 (Version None)
Quarter: 2006Q3

REPORT INFORMATION
  Report Type: 
  Country: None (occurrence: None)
  Receive Date: 20060901
  Receipt Date: 20060814
  Transmission Date: 20061208
  Serious: Yes (Hospitalization)
  Sender: FDA-Public Use
  Company Number: US200608003319

PATIENT
  Age: 53 Year
  Sex: Female
  Weight: 83.9 kg

DRUGS (1)
  1. ZYPREXA [Suspect]
     Dosage: 2.5 MG ORAL
     Route: 048
     Dates: start: 19990101, end: 20010101

REACTIONS (8)
  - ANKLE FRACTURE [None]
  - BLOOD CHOLESTEROL ABNORMAL [None]
  - BLOOD TRIGLYCERIDES INCREASED [None]
  - DIABETES MELLITUS [None]
  - HYPERTENSION [None]
  - METABOLIC DISORDER [None]
  - OBESITY [None]
  - VENOUS THROMBOSIS [None]
